FAERS Safety Report 6301553-9 (Version None)
Quarter: 2009Q3

REPORT INFORMATION
  Report Type: 
  Country: None (occurrence: None)
  Receive Date: 20090807
  Receipt Date: 20090728
  Transmission Date: 20100115
  Serious: Yes (Hospitalization, Other)
  Sender: FDA-Public Use
  Company Number: FR-ELI_LILLY_AND_COMPANY-FR200907002968

PATIENT
  Age: 66 Year
  Sex: Female
  Weight: 56 kg

DRUGS (4)
  1. FORTEO [Suspect]
     Indication: OSTEOPOROTIC FRACTURE
     Dosage: 20 UG, DAILY (1/D)
     Route: 058
     Dates: start: 20090501
  2. SEROPLEX [Concomitant]
     Dosage: UNK, UNKNOWN
     Route: 065
  3. STABLON [Concomitant]
     Dosage: UNK, UNKNOWN
     Route: 065
  4. BROMAZEPAM [Concomitant]
     Dosage: UNK, UNKNOWN
     Route: 065

REACTIONS (3)
  - FALL [None]
  - FEMUR FRACTURE [None]
  - SPINAL FRACTURE [None]
